FAERS Safety Report 14449307 (Version 6)
Quarter: 2021Q2

REPORT INFORMATION
  Report Type: Report from Study
  Country: PL (occurrence: PL)
  Receive Date: 20180127
  Receipt Date: 20210519
  Transmission Date: 20210716
  Serious: Yes (Hospitalization)
  Sender: FDA-Public Use
  Company Number: PL-AMGEN-POLCT2018009963

PATIENT
  Age: 64 Year
  Sex: Male
  Weight: 90.6 kg

DRUGS (27)
  1. POLPRIL [Concomitant]
     Active Substance: RAMIPRIL
     Dosage: 2.5 MILLIGRAM
     Dates: start: 20170425, end: 20180108
  2. CILOSTAZOL. [Concomitant]
     Active Substance: CILOSTAZOL
     Dosage: UNK
  3. ENOXAPARIN [Concomitant]
     Active Substance: ENOXAPARIN
     Dosage: UNK
  4. HUMALOG [Concomitant]
     Active Substance: INSULIN LISPRO
     Dosage: 1 UNK
     Dates: start: 20170425
  5. MAGNE B6 [Concomitant]
     Active Substance: MAGNESIUM\PYRIDOXINE
     Dosage: 1 UNK, UNK
     Dates: start: 20170425
  6. MILURIT [Concomitant]
     Active Substance: ALLOPURINOL
     Dosage: 300 MILLIGRAM
     Dates: start: 20170717, end: 20180729
  7. HELICID [OMEPRAZOLE] [Concomitant]
     Active Substance: OMEPRAZOLE
     Dosage: 20 MILLIGRAM
     Dates: start: 20171204, end: 20180620
  8. SPIRONOL [Concomitant]
     Active Substance: SPIRONOLACTONE
     Dosage: 1 UNK
     Dates: start: 20171120, end: 20180715
  9. HUMULIN N [Concomitant]
     Active Substance: INSULIN HUMAN
     Dosage: 6 UNK
     Dates: start: 201704
  10. EVOLOCUMAB [Suspect]
     Active Substance: EVOLOCUMAB
     Indication: DYSLIPIDAEMIA
     Dosage: 1 MILLILITER
     Route: 058
     Dates: start: 20160903
  11. IPP [PANTOPRAZOLE SODIUM SESQUIHYDRATE] [Concomitant]
     Dosage: 20 MILLIGRAM
     Dates: start: 20170425, end: 201712
  12. THIOGAMMA [Concomitant]
     Active Substance: .ALPHA.-LIPOIC ACID
     Dosage: 600 MILLIGRAM
     Dates: start: 20170816, end: 20180123
  13. CARDURAXL [Concomitant]
     Active Substance: DOXAZOSIN MESYLATE
     Dosage: 8 MG, UNK
     Dates: start: 20170809
  14. INSULIN [Concomitant]
     Active Substance: INSULIN NOS
     Dosage: UNK
  15. TRITTICO [Concomitant]
     Active Substance: TRAZODONE HYDROCHLORIDE
     Dosage: 0.5 UNK
     Dates: start: 20171113, end: 201809
  16. ASPIRIN. [Concomitant]
     Active Substance: ASPIRIN
     Dosage: UNK
  17. VICEBROL [Concomitant]
     Active Substance: VINPOCETINE
     Dosage: 5 MILLIGRAM
     Dates: start: 20170425, end: 20180516
  18. IPOREL [Concomitant]
     Active Substance: CLONIDINE
     Dosage: 75 MICROGRAM
     Dates: start: 20170708, end: 20180122
  19. ATORVASTEROL [Concomitant]
     Active Substance: ATORVASTATIN
     Indication: DYSLIPIDAEMIA
     Dosage: 40 MG, UNK
     Dates: start: 20170816
  20. VICEBROL [Concomitant]
     Active Substance: VINPOCETINE
     Dates: start: 20170425, end: 20180516
  21. POLOCARD [Concomitant]
     Active Substance: ASPIRIN
     Dosage: 150 MILLIGRAM
     Dates: start: 20171014, end: 20190116
  22. CLOPIDOGREL [Concomitant]
     Active Substance: CLOPIDOGREL BISULFATE
     Dosage: 75 MILLIGRAM
     Dates: start: 20180105, end: 20180816
  23. FORMETIC [Concomitant]
     Active Substance: METFORMIN HYDROCHLORIDE
     Dosage: 500 MILLIGRAM
     Dates: start: 20170425
  24. NEBILENIN [Concomitant]
     Dosage: 5 MILLIGRAM
     Dates: start: 20171120
  25. CARDURA XL [Concomitant]
     Active Substance: DOXAZOSIN MESYLATE
     Dosage: 8 MILLIGRAM
     Dates: start: 20170809
  26. FUROSEMID [Concomitant]
     Active Substance: FUROSEMIDE
     Dosage: 1 UNK
     Dates: start: 20170425
  27. AMLOZEK [Concomitant]
     Active Substance: AMLODIPINE BESYLATE
     Dosage: 10 MICROGRAM
     Dates: start: 20170425

REACTIONS (1)
  - Carotid artery occlusion [Recovered/Resolved]

NARRATIVE: CASE EVENT DATE: 20180102
